FAERS Safety Report 12594876 (Version 1)
Quarter: 2016Q3

REPORT INFORMATION
  Report Type: Spontaneous
  Country: FR (occurrence: FR)
  Receive Date: 20160726
  Receipt Date: 20160726
  Transmission Date: 20161109
  Serious: Yes (Death, Other)
  Sender: FDA-Public Use
  Company Number: FR-PFIZER INC-2016352645

PATIENT
  Age: 83 Year
  Sex: Male

DRUGS (2)
  1. PROLIA [Suspect]
     Active Substance: DENOSUMAB
     Indication: OSTEOPOROSIS
     Dosage: 60 MG, SINGLE (ONCE)
     Route: 042
     Dates: start: 20160607, end: 20160607
  2. CORDARONE [Suspect]
     Active Substance: AMIODARONE HYDROCHLORIDE
     Indication: ATRIAL FIBRILLATION
     Dosage: 200 MG, 3X/DAY
     Route: 048
     Dates: start: 20160602, end: 20160616

REACTIONS (5)
  - Petechiae [Unknown]
  - Prothrombin time shortened [Unknown]
  - Bleeding time prolonged [Unknown]
  - Acute pulmonary oedema [Fatal]
  - Purpura [Unknown]

NARRATIVE: CASE EVENT DATE: 20160616
